FAERS Safety Report 5503026-X (Version None)
Quarter: 2007Q4

REPORT INFORMATION
  Report Type: 
  Country: None (occurrence: None)
  Receive Date: 20071029
  Receipt Date: 20071015
  Transmission Date: 20080405
  Serious: Yes (Hospitalization)
  Sender: FDA-Public Use
  Company Number: 2005US000477

PATIENT
  Age: 71 Year
  Sex: Male

DRUGS (19)
  1. PROGRAF [Suspect]
     Indication: PROPHYLAXIS AGAINST TRANSPLANT REJECTION
     Dosage: 10 MG, UID/QD, ORAL
     Route: 048
     Dates: start: 20041205
  2. MYCOPHENOLATE MOFETIL [Suspect]
     Indication: PROPHYLAXIS AGAINST TRANSPLANT REJECTION
     Dosage: 1000 MG,  BID, ORAL; 750 MG, BID, ORAL
     Route: 048
     Dates: start: 20041205
  3. DACLIZUMAB(DACLIZUMAB) [Suspect]
     Indication: PROPHYLAXIS AGAINST TRANSPLANT REJECTION
     Dosage: 136 MG, TOTAL DOSE, IV NOS
     Route: 042
     Dates: start: 20041205, end: 20041205
  4. PREDNISONE [Suspect]
     Indication: PROPHYLAXIS AGAINST TRANSPLANT REJECTION
     Dosage: 10 MG, UID/QD, ORAL
     Route: 048
     Dates: start: 20041207
  5. LASIX (FUROSEMIDE, FUROSEMIDE SODIUM) [Concomitant]
  6. BACTRIM [Concomitant]
  7. PEPCID [Concomitant]
  8. ASPIRIN [Concomitant]
  9. FLOMAX [Concomitant]
  10. PRAVACHOL [Concomitant]
  11. ACTONEL [Concomitant]
  12. SYNTHROID [Concomitant]
  13. TRAZODONE (TRAZODONE HYDROCHLORIDE) [Concomitant]
  14. DEPAKOTE [Concomitant]
  15. SINEMET (CARBIDOPA) [Concomitant]
  16. DITROPAN [Concomitant]
  17. DULCOLAX [Concomitant]
  18. MULTIVITAMIN [Concomitant]
  19. MYCELEX [Concomitant]

REACTIONS (5)
  - ANURIA [None]
  - ARTERIOVENOUS GRAFT SITE INFECTION [None]
  - CELLULITIS [None]
  - COMPLICATIONS OF TRANSPLANTED KIDNEY [None]
  - GRAFT THROMBOSIS [None]
